FAERS Safety Report 8859535 (Version 1)
Quarter: 2012Q4

REPORT INFORMATION
  Report Type: 
  Country: US (occurrence: US)
  Receive Date: 20121024
  Receipt Date: 20121024
  Transmission Date: 20130627
  Serious: Yes (Disabling, Other)
  Sender: FDA-Public Use
  Company Number: US-009507513-1012USA02888

PATIENT

DRUGS (2)
  1. FOSAMAX [Suspect]
     Indication: OSTEOPENIA
     Dosage: 70 mg, QW
     Route: 048
     Dates: start: 200209, end: 20080220
  2. FOSAMAX PLUS D [Suspect]
     Indication: OSTEOPOROSIS
     Dosage: 70mg/2800
     Route: 048
     Dates: start: 20051014, end: 200801

REACTIONS (10)
  - Jaw disorder [Not Recovered/Not Resolved]
  - Osteonecrosis of jaw [Not Recovered/Not Resolved]
  - Type 2 diabetes mellitus [Unknown]
  - Oral pain [Unknown]
  - Abdominal pain [Recovering/Resolving]
  - Tooth disorder [Unknown]
  - Tooth abscess [Unknown]
  - Tooth infection [Unknown]
  - Osteomyelitis [Unknown]
  - Tendon injury [Unknown]
